FAERS Safety Report 8481722-2 (Version None)
Quarter: 2012Q2

REPORT INFORMATION
  Report Type: 
  Country: None (occurrence: None)
  Receive Date: 20120402
  Receipt Date: 20110418
  Transmission Date: 20120825
  Serious: Yes (Other)
  Sender: FDA-Public Use
  Company Number: PHHY2011US26218

PATIENT
  Age: 58 Year
  Sex: Female

DRUGS (6)
  1. EXFORGE HCT [Suspect]
     Dosage: 320 MG VALS, 10 MG AMIO AND 25 MG HYDR, (1 DF), ORAL
     Route: 048
     Dates: start: 20110211
  2. METOPROLOL TARTRATE [Concomitant]
  3. ASPIRIN [Concomitant]
  4. BENICAR HCT [Suspect]
     Dosage: 1 DF, 40/25 MG DAILY
     Dates: start: 20100803
  5. BENICAR [Suspect]
     Dosage: 1 DF
  6. ATENOLOL [Suspect]
     Dosage: 1 DF

REACTIONS (1)
  - HYPERTENSION [None]
